FAERS Safety Report 10298025 (Version 2)
Quarter: 2014Q3

REPORT INFORMATION
  Report Type: Report from Study
  Country: US (occurrence: US)
  Receive Date: 20140711
  Receipt Date: 20140711
  Transmission Date: 20150326
  Serious: Yes (Disabling, Other)
  Sender: FDA-Public Use
  Company Number: US-SA-2014SA050041

PATIENT
  Age: 60 Year
  Sex: Female

DRUGS (21)
  1. BENEFIBER [Concomitant]
     Active Substance: STARCH, WHEAT
  2. ROPINIROLE HYDROCHLORIDE. [Concomitant]
     Active Substance: ROPINIROLE HYDROCHLORIDE
  3. AUBAGIO [Suspect]
     Active Substance: TERIFLUNOMIDE
     Indication: MULTIPLE SCLEROSIS
     Route: 048
     Dates: start: 20140412, end: 20140515
  4. MILNACIPRAN [Concomitant]
     Active Substance: MILNACIPRAN
  5. AMBIEN [Concomitant]
     Active Substance: ZOLPIDEM TARTRATE
  6. ESTROPIPATE. [Concomitant]
     Active Substance: ESTROPIPATE
  7. AZELASTINE [Concomitant]
     Active Substance: AZELASTINE
  8. AUBAGIO [Suspect]
     Active Substance: TERIFLUNOMIDE
     Indication: MULTIPLE SCLEROSIS
     Route: 048
     Dates: start: 201403, end: 201404
  9. FISH OIL [Concomitant]
     Active Substance: FISH OIL
  10. PREVACID [Concomitant]
     Active Substance: LANSOPRAZOLE
  11. TRAMADOL [Concomitant]
     Active Substance: TRAMADOL
  12. LEVOTHYROXINE [Concomitant]
     Active Substance: LEVOTHYROXINE
  13. MIRALAX [Concomitant]
     Active Substance: POLYETHYLENE GLYCOL 3350
  14. ASPIRIN. [Concomitant]
     Active Substance: ASPIRIN
  15. IBUPROFEN. [Concomitant]
     Active Substance: IBUPROFEN
  16. ATENOLOL. [Concomitant]
     Active Substance: ATENOLOL
  17. WELLBUTRIN [Concomitant]
     Active Substance: BUPROPION HYDROCHLORIDE
  18. MULTIVITAMINS [Concomitant]
     Active Substance: VITAMINS
  19. PHAZYME [Concomitant]
     Active Substance: DIMETHICONE 410
  20. ZYRTEC [Concomitant]
     Active Substance: CETIRIZINE HYDROCHLORIDE
  21. CALCIUM/VITAMIN D [Concomitant]
     Active Substance: CALCIUM\VITAMIN D

REACTIONS (9)
  - Gastrointestinal disorder [Unknown]
  - Feeling abnormal [Unknown]
  - Feeling abnormal [Not Recovered/Not Resolved]
  - Unevaluable event [Unknown]
  - Feeling hot [Unknown]
  - Hypoaesthesia [Unknown]
  - Hyperhidrosis [Unknown]
  - Fatigue [Unknown]
  - Waist circumference increased [Unknown]

NARRATIVE: CASE EVENT DATE: 201403
